FAERS Safety Report 8356120-2 (Version None)
Quarter: 2012Q2

REPORT INFORMATION
  Report Type: 
  Country: None (occurrence: None)
  Receive Date: 20120514
  Receipt Date: 20120509
  Transmission Date: 20120825
  Serious: Yes (Hospitalization, Other)
  Sender: FDA-Public Use
  Company Number: SE-AMGEN-SWESP2012017710

PATIENT
  Age: 66 Year
  Sex: Male
  Weight: 65 kg

DRUGS (20)
  1. ZOPICLONE [Concomitant]
  2. ALLOPURINOL [Concomitant]
  3. OXYCONTIN [Concomitant]
  4. FRAGMIN [Concomitant]
  5. EMGESAN [Concomitant]
  6. TRYPTIZOL                          /00002202/ [Concomitant]
  7. RENVELA [Concomitant]
  8. POSTAFEN                           /00072801/ [Concomitant]
  9. ETALPHA [Concomitant]
  10. METOPROLOL TARTRATE [Concomitant]
  11. ALVEDON [Concomitant]
  12. CLEMASTINE FUMARATE [Concomitant]
  13. DIMOR [Concomitant]
  14. BRICANYL [Concomitant]
  15. PROLIA [Suspect]
     Indication: OSTEOPOROSIS
     Dosage: 60 MG, UNK
     Dates: start: 20120206, end: 20120206
  16. OMEPRAZOLE [Concomitant]
  17. KETOGAN                            /00129101/ [Concomitant]
  18. ARANESP [Concomitant]
  19. FUROSEMIDE [Concomitant]
  20. MOLLIPECT [Concomitant]

REACTIONS (3)
  - DYSPNOEA [None]
  - HYPOCALCAEMIA [None]
  - ANAEMIA [None]
